FAERS Safety Report 16294530 (Version 2)
Quarter: 2020Q2

REPORT INFORMATION
  Report Type: Spontaneous
  Country: US (occurrence: US)
  Receive Date: 20190509
  Receipt Date: 20200505
  Transmission Date: 20200713
  Serious: No
  Sender: FDA-Public Use
  Company Number: US-ROCHE-2083817

PATIENT
  Sex: Female

DRUGS (2)
  1. XIFAXAN [Concomitant]
     Active Substance: RIFAXIMIN
     Indication: PRODUCT USED FOR UNKNOWN INDICATION
     Route: 065
  2. ESBRIET [Suspect]
     Active Substance: PIRFENIDONE
     Indication: PULMONARY ARTERIAL HYPERTENSION
     Dosage: ONGOING
     Route: 048
     Dates: start: 20180201

REACTIONS (5)
  - Gastrooesophageal reflux disease [Unknown]
  - Sleep disorder [Unknown]
  - Sinusitis [Unknown]
  - Gastrointestinal bacterial overgrowth [Unknown]
  - Abdominal distension [Unknown]
